FAERS Safety Report 7122577-8 (Version None)
Quarter: 2010Q4

REPORT INFORMATION
  Report Type: 
  Country: None (occurrence: None)
  Receive Date: 20101124
  Receipt Date: 20101111
  Transmission Date: 20110411
  Serious: Yes (Other)
  Sender: FDA-Public Use
  Company Number: PHHY2010BE77474

PATIENT

DRUGS (1)
  1. AREDIA [Suspect]
     Route: 042

REACTIONS (2)
  - PAPILLOEDEMA [None]
  - TOXIC OPTIC NEUROPATHY [None]
